FAERS Safety Report 14447981 (Version 1)
Quarter: 2018Q1

REPORT INFORMATION
  Report Type: Spontaneous
  Country: FR (occurrence: FR)
  Receive Date: 20180126
  Receipt Date: 20180126
  Transmission Date: 20180509
  Serious: Yes (Hospitalization, Disabling)
  Sender: FDA-Public Use
  Company Number: FR-BAXALTA-2016BLT001654

PATIENT
  Sex: Female

DRUGS (4)
  1. HOLOXAN [Suspect]
     Active Substance: IFOSFAMIDE
     Indication: ACUTE LYMPHOCYTIC LEUKAEMIA
     Dosage: 4054 MG/M2, 1X A WEEK
     Route: 051
     Dates: start: 20110426, end: 20120307
  2. GLIVEC [Suspect]
     Active Substance: IMATINIB MESYLATE
     Indication: ACUTE LYMPHOCYTIC LEUKAEMIA
     Dosage: 400 MG, 1X A DAY
     Route: 048
     Dates: start: 20110501, end: 20130419
  3. ONCASPAR [Suspect]
     Active Substance: PEGASPARGASE
     Indication: ACUTE LYMPHOCYTIC LEUKAEMIA
     Dosage: 279 IU/M2/WEEK, TOTAL DOSE 5015 IU/M2
     Route: 051
     Dates: start: 20110426, end: 20120307
  4. ELDISINE [Suspect]
     Active Substance: VINDESINE SULFATE
     Indication: ACUTE LYMPHOCYTIC LEUKAEMIA
     Dosage: 5.4 MG/M2, 1X A WEEK
     Route: 051
     Dates: start: 20110426, end: 20120307

REACTIONS (1)
  - Obliterative bronchiolitis [Not Recovered/Not Resolved]
